FAERS Safety Report 8257228-2 (Version None)
Quarter: 2012Q1

REPORT INFORMATION
  Report Type: 
  Country: None (occurrence: None)
  Receive Date: 20120330
  Receipt Date: 20120321
  Transmission Date: 20120608
  Serious: Yes (Hospitalization)
  Sender: FDA-Public Use
  Company Number: ACO_29851_2012

PATIENT
  Age: 64 Year
  Sex: Male

DRUGS (2)
  1. CIALIS [Concomitant]
  2. FAMPYRA (DALFAMPRIDINE) TABLET [Suspect]
     Indication: PRIMARY PROGRESSIVE MULTIPLE SCLEROSIS
     Dosage: ORAL
     Route: 048
     Dates: start: 20111120, end: 20120215

REACTIONS (1)
  - GRAND MAL CONVULSION [None]
